FAERS Safety Report 23565917 (Version 1)
Quarter: 2024Q1

REPORT INFORMATION
  Report Type: Spontaneous
  Country: US (occurrence: None)
  Receive Date: 20240225
  Receipt Date: 20240225
  Transmission Date: 20240410
  Serious: Yes (Hospitalization)
  Sender: FDA-Public Use
  Company Number: None

PATIENT
  Age: 69 Year
  Sex: Female

DRUGS (6)
  1. LEVOFLOXACIN [Suspect]
     Active Substance: LEVOFLOXACIN
     Route: 048
     Dates: start: 20240118, end: 20240121
  2. METOPROLOL [Concomitant]
     Active Substance: METOPROLOL
  3. LEVOTHYROXINE [Concomitant]
     Active Substance: LEVOTHYROXINE\LEVOTHYROXINE SODIUM
  4. CYCLOBENZAPRINE [Concomitant]
     Active Substance: CYCLOBENZAPRINE
  5. MIRTAZAPINE [Concomitant]
  6. VITAMIN D [Concomitant]
     Active Substance: VITAMIN D NOS

REACTIONS (10)
  - Abdominal pain [None]
  - Bacterial colitis [None]
  - Asthenia [None]
  - Fatigue [None]
  - Dizziness [None]
  - Confusional state [None]
  - Insomnia [None]
  - Syncope [None]
  - Pain [None]
  - Confusional state [None]

NARRATIVE: CASE EVENT DATE: 20240118
